FAERS Safety Report 5418394-7 (Version None)
Quarter: 2007Q3

REPORT INFORMATION
  Report Type: 
  Country: None (occurrence: None)
  Receive Date: 20070718
  Receipt Date: 20060803
  Transmission Date: 20080115
  Serious: Yes (Other)
  Sender: FDA-Public Use
  Company Number: 2005161682

PATIENT
  Age: 70 Year
  Sex: Female
  Weight: 74.8435 kg

DRUGS (3)
  1. CELEBREX [Suspect]
     Indication: PAIN
  2. BEXTRA [Suspect]
     Indication: ARTHRITIS
     Dosage: 10 MG (10 MG, 1 IN 1 D);
     Dates: start: 20020627
  3. VIOXX [Suspect]
     Indication: ILL-DEFINED DISORDER

REACTIONS (1)
  - CORONARY ARTERY THROMBOSIS [None]
